FAERS Safety Report 6615271-0 (Version None)
Quarter: 2010Q1

REPORT INFORMATION
  Report Type: 
  Country: None (occurrence: None)
  Receive Date: 20100305
  Receipt Date: 20100301
  Transmission Date: 20100710
  Serious: Yes (Hospitalization)
  Sender: FDA-Public Use
  Company Number: US-MYLANLABS-2010S1003192

PATIENT
  Age: 28 Year
  Sex: Male
  Weight: 88.91 kg

DRUGS (4)
  1. TOPIRAMATE TABLETS [Suspect]
     Indication: GRAND MAL CONVULSION
     Route: 048
     Dates: start: 20090801, end: 20091101
  2. TOPIRAMATE TABLETS [Suspect]
     Route: 048
     Dates: start: 20090801, end: 20091101
  3. TOPIRAMATE TABLETS [Suspect]
     Route: 048
     Dates: start: 20091101, end: 20091201
  4. TOPIRAMATE TABLETS [Suspect]
     Route: 048
     Dates: start: 20091101, end: 20091201

REACTIONS (7)
  - CONFUSIONAL STATE [None]
  - CONVULSION [None]
  - DISORIENTATION [None]
  - FATIGUE [None]
  - MEMORY IMPAIRMENT [None]
  - MUSCLE TWITCHING [None]
  - ROAD TRAFFIC ACCIDENT [None]
